FAERS Safety Report 7850667-0 (Version None)
Quarter: 2011Q4

REPORT INFORMATION
  Report Type: 
  Country: None (occurrence: None)
  Receive Date: 20111026
  Receipt Date: 20111014
  Transmission Date: 20120403
  Serious: Yes (Other)
  Sender: FDA-Public Use
  Company Number: US-US-EMD SERONO, INC.-7089946

PATIENT
  Sex: Female

DRUGS (1)
  1. REBIF [Suspect]
     Indication: MULTIPLE SCLEROSIS
     Route: 058
     Dates: start: 20110727

REACTIONS (4)
  - CORONARY ARTERY STENOSIS [None]
  - CORONARY ARTERY DISEASE [None]
  - MITRAL VALVE PROLAPSE [None]
  - INJECTION SITE ERYTHEMA [None]
